FAERS Safety Report 4665402-7 (Version None)
Quarter: 2005Q2

REPORT INFORMATION
  Report Type: 
  Country: None (occurrence: None)
  Receive Date: 20050517
  Receipt Date: 20050517
  Transmission Date: 20051028
  Serious: Yes (Hospitalization)
  Sender: FDA-Public Use
  Company Number: None

PATIENT
  Age: 55 Year
  Sex: Female
  Weight: 65.7716 kg

DRUGS (1)
  1. RISPERDAL [Suspect]
     Indication: MAJOR DEPRESSION
     Dosage: 1 MG ONCE DAILY ORAL
     Route: 048
     Dates: start: 20041003, end: 20050412

REACTIONS (5)
  - ASTHENIA [None]
  - BLOOD PRESSURE DECREASED [None]
  - CEREBROVASCULAR ACCIDENT [None]
  - DIZZINESS [None]
  - PARKINSONISM [None]
